FAERS Safety Report 8568985 (Version 5)
Quarter: 2013Q2

REPORT INFORMATION
  Report Type: Spontaneous
  Country: US (occurrence: US)
  Receive Date: 20120518
  Receipt Date: 20130524
  Transmission Date: 20140414
  Serious: Yes (Hospitalization)
  Sender: FDA-Public Use
  Company Number: US-B.I. PHARMACEUTICALS,INC./RIDGEFIELD-2012-BP-10715BP

PATIENT
  Age: 87 Year
  Sex: Male
  Weight: 87.09 kg

DRUGS (7)
  1. PRADAXA [Suspect]
     Indication: ATRIAL FIBRILLATION
     Dosage: 300 MG
     Route: 048
     Dates: start: 20110624, end: 20110920
  2. LOVASTATIN [Concomitant]
     Indication: HYPERLIPIDAEMIA
     Dosage: 10 MG
     Route: 048
     Dates: start: 2006
  3. LISINOPRIL/HYDROCHLOROTHIAZIDE [Concomitant]
     Route: 048
     Dates: start: 2006
  4. DIAZEPAM [Concomitant]
     Indication: DIZZINESS
     Route: 048
     Dates: start: 2009
  5. AMLODIPINE BESYLATE [Concomitant]
     Dates: start: 2010
  6. HYDRALAZINE [Concomitant]
  7. LABETALOL [Concomitant]

REACTIONS (2)
  - Haemorrhage intracranial [Unknown]
  - Subdural haematoma [Unknown]
